FAERS Safety Report 16070327 (Version 1)
Quarter: 2019Q1

REPORT INFORMATION
  Report Type: Spontaneous
  Country: US (occurrence: US)
  Receive Date: 20190314
  Receipt Date: 20190314
  Transmission Date: 20190418
  Serious: No
  Sender: FDA-Public Use
  Company Number: US-ASTRAZENECA-2019SE26355

PATIENT
  Sex: Female
  Weight: 95.7 kg

DRUGS (1)
  1. BYDUREON [Suspect]
     Active Substance: EXENATIDE
     Indication: INSULIN-REQUIRING TYPE 2 DIABETES MELLITUS
     Route: 058
     Dates: start: 201901

REACTIONS (8)
  - Feeling hot [Unknown]
  - Wrong technique in product usage process [Unknown]
  - Dizziness [Unknown]
  - Device issue [Unknown]
  - Flushing [Unknown]
  - Nausea [Unknown]
  - Injection site erythema [Not Recovered/Not Resolved]
  - Injection site haemorrhage [Unknown]

NARRATIVE: CASE EVENT DATE: 20190212
